FAERS Safety Report 8086998-1 (Version None)
Quarter: 2012Q1

REPORT INFORMATION
  Report Type: 
  Country: None (occurrence: None)
  Receive Date: 20120128
  Receipt Date: 20110520
  Transmission Date: 20120608
  Serious: Yes (Other)
  Sender: FDA-Public Use
  Company Number: US-ABBOTT-11P-163-0727457-00

PATIENT
  Sex: Male
  Weight: 83.99 kg

DRUGS (3)
  1. HUMIRA [Suspect]
     Route: 058
     Dates: start: 20110426, end: 20110426
  2. HUMIRA [Suspect]
     Indication: CROHN'S DISEASE
     Route: 058
     Dates: start: 20110412, end: 20110412
  3. UNKNOWN TOPICAL CREAMS [Concomitant]
     Indication: INFECTION
     Dates: start: 20110501

REACTIONS (3)
  - SKIN MACERATION [None]
  - WOUND [None]
  - OSTEOMYELITIS [None]
